FAERS Safety Report 11717555 (Version 1)
Quarter: 2015Q4

REPORT INFORMATION
  Report Type: Spontaneous
  Country: US (occurrence: US)
  Receive Date: 20151110
  Receipt Date: 20151110
  Transmission Date: 20160304
  Serious: No
  Sender: FDA-Public Use
  Company Number: US-TEVA-590458USA

PATIENT
  Age: 60 Year
  Sex: Male
  Weight: 82 kg

DRUGS (6)
  1. CELECOXIB. [Suspect]
     Active Substance: CELECOXIB
     Indication: PAIN
     Route: 065
     Dates: start: 2013
  2. CELEBREX [Suspect]
     Active Substance: CELECOXIB
     Indication: SCLERODERMA
  3. TESTOSTERONE. [Concomitant]
     Active Substance: TESTOSTERONE
  4. CELEBREX [Suspect]
     Active Substance: CELECOXIB
     Indication: ARTHRITIS
     Dosage: 200 MILLIGRAM DAILY;
  5. FENTANYL. [Concomitant]
     Active Substance: FENTANYL
     Dosage: 37.5 MICROGRAM DAILY;
  6. HYDROCODONE [Concomitant]
     Active Substance: HYDROCODONE
     Dosage: 40 MILLIGRAM DAILY; AS NEEDED

REACTIONS (4)
  - Carpal tunnel syndrome [Unknown]
  - Pain [Unknown]
  - Drug ineffective [Unknown]
  - Product substitution issue [Unknown]

NARRATIVE: CASE EVENT DATE: 20150807
